FAERS Safety Report 20784986 (Version 1)
Quarter: 2022Q2

REPORT INFORMATION
  Report Type: Spontaneous
  Country: US (occurrence: None)
  Receive Date: 20220503
  Receipt Date: 20220503
  Transmission Date: 20220720
  Serious: Yes (Hospitalization)
  Sender: FDA-Public Use
  Company Number: None

PATIENT
  Age: 55 Year
  Sex: Female
  Weight: 70.65 kg

DRUGS (1)
  1. PIQRAY [Suspect]
     Active Substance: ALPELISIB
     Indication: Breast cancer
     Dosage: FREQUENCY : DAILY;?
     Route: 048
     Dates: start: 20220422, end: 20220502

REACTIONS (7)
  - Blood glucose increased [None]
  - Vision blurred [None]
  - Incontinence [None]
  - Dizziness [None]
  - Joint swelling [None]
  - Fall [None]
  - Diabetic ketoacidosis [None]

NARRATIVE: CASE EVENT DATE: 20220503
